FAERS Safety Report 15959306 (Version 1)
Quarter: 2019Q1

REPORT INFORMATION
  Report Type: Other
  Country: ES (occurrence: ES)
  Receive Date: 20190214
  Receipt Date: 20190214
  Transmission Date: 20190417
  Serious: Yes (Hospitalization)
  Sender: FDA-Public Use
  Company Number: ES-CELLTRION INC.-2019ES018544

PATIENT

DRUGS (1)
  1. INFLIXIMAB (UNKNOWN) [Suspect]
     Active Substance: INFLIXIMAB
     Indication: CROHN^S DISEASE
     Dosage: 5 MG/KG EVERY 6 WEEKS
     Route: 042
     Dates: start: 20160307, end: 20181017

REACTIONS (1)
  - Meningoradiculitis [Recovered/Resolved]

NARRATIVE: CASE EVENT DATE: 20181109
